FAERS Safety Report 4754120-2 (Version None)
Quarter: 2005Q3

REPORT INFORMATION
  Report Type: 
  Country: None (occurrence: None)
  Receive Date: 20050825
  Receipt Date: 20050210
  Transmission Date: 20060218
  Serious: Yes (Other)
  Sender: FDA-Public Use
  Company Number: HQWYE362416FEB05

PATIENT
  Age: 4 Year
  Sex: Female
  Weight: 19.07 kg

DRUGS (1)
  1. CHILDREN'S ADVIL [Suspect]
     Indication: PHARYNGITIS STREPTOCOCCAL
     Dosage: ALMOST 2 TEASPONS EVERY 8 HOURS, ORAL
     Route: 048
     Dates: start: 20050202, end: 20050208

REACTIONS (4)
  - FAECES DISCOLOURED [None]
  - RASH PAPULAR [None]
  - RASH PRURITIC [None]
  - SWELLING FACE [None]
